FAERS Safety Report 11803168 (Version 3)
Quarter: 2016Q2

REPORT INFORMATION
  Report Type: Report from Study
  Country: CA (occurrence: CA)
  Receive Date: 20151204
  Receipt Date: 20160411
  Transmission Date: 20160815
  Serious: Yes (Life-Threatening, Hospitalization, Other)
  Sender: FDA-Public Use
  Company Number: CA-AMGEN-CANCT2015129193

PATIENT
  Age: 19 Year
  Sex: Female

DRUGS (28)
  1. DILAUDID [Concomitant]
     Active Substance: HYDROMORPHONE HYDROCHLORIDE
     Dosage: 3 TO 4 MG, Q4H (PRN)
     Route: 048
     Dates: start: 20151111, end: 20151205
  2. POTASSIUM CHLORIDE. [Concomitant]
     Active Substance: POTASSIUM CHLORIDE
     Dosage: 40 MMOL, ONE TIME DOSE
     Route: 048
     Dates: start: 20151121, end: 20151127
  3. DEXAMETHASONE. [Concomitant]
     Active Substance: DEXAMETHASONE
     Dosage: 20 MG, UNK
     Route: 042
     Dates: start: 20151110
  4. ROCEPHIN [Concomitant]
     Active Substance: CEFTRIAXONE SODIUM
     Dosage: 1 G, QD
     Route: 042
     Dates: start: 20151117, end: 20151127
  5. POTASSIUM PHOSPHATE                /00493501/ [Concomitant]
     Dosage: 15 MMOL, ONE TIME DOSE
     Route: 042
     Dates: start: 20151112, end: 20151112
  6. PROCHLORPERAZINE. [Concomitant]
     Active Substance: PROCHLORPERAZINE
     Dosage: 10 MG, Q4H (PRN)
     Route: 048
     Dates: start: 20151110, end: 20151205
  7. FLUCONAZOLE. [Concomitant]
     Active Substance: FLUCONAZOLE
     Dosage: 400 MG, QD
     Route: 048
     Dates: start: 20151110, end: 20151205
  8. MAGNESIUM SULFATE. [Concomitant]
     Active Substance: MAGNESIUM SULFATE
     Dosage: 5 G, UNK
     Route: 042
     Dates: start: 20151119, end: 20151203
  9. ACYCLOVIR                          /00587301/ [Concomitant]
     Active Substance: ACYCLOVIR
     Dosage: 400 MG, Q12H
     Route: 048
     Dates: start: 20150908, end: 20151205
  10. ONDANSETRON [Concomitant]
     Active Substance: ONDANSETRON
     Dosage: 8 MG, Q12H (PRN)
     Route: 042
     Dates: start: 20150826, end: 20151205
  11. ANTACID                            /00018101/ [Concomitant]
     Active Substance: ALUMINUM HYDROXIDE\DIMETHICONE\MAGNESIUM HYDROXIDE
     Dosage: 15 ML, TID (PRN)
     Route: 048
     Dates: start: 20151126, end: 20151205
  12. LIDOCAINE. [Concomitant]
     Active Substance: LIDOCAINE
     Dosage: 15 ML, TID (PRN) ON MUCOUS MEMBRANE
     Dates: start: 20151126, end: 20151205
  13. PEGALAX [Concomitant]
     Dosage: 17 G, QD (PRN)
     Route: 048
     Dates: start: 20150831, end: 20151205
  14. ALLOPURINOL. [Concomitant]
     Active Substance: ALLOPURINOL
     Dosage: 300 MG, QD
     Route: 048
     Dates: start: 20151110, end: 20151129
  15. MEROPENEM. [Concomitant]
     Active Substance: MEROPENEM
     Dosage: 500 MG, Q6H
     Route: 042
     Dates: start: 20151127, end: 20151205
  16. DIMENHYDRINATE. [Concomitant]
     Active Substance: DIMENHYDRINATE
     Dosage: 25-50 MG, Q4H (PRN)
     Route: 042
     Dates: start: 20150908, end: 20151205
  17. PANTOPRAZOLE [Concomitant]
     Active Substance: PANTOPRAZOLE SODIUM
     Dosage: 40 MG, BID
     Route: 048
     Dates: start: 20150908, end: 20151205
  18. SENNA                              /00142201/ [Concomitant]
     Active Substance: SENNA LEAF
     Dosage: 8.6-17.2 MG, QH (PRN)
     Route: 048
     Dates: start: 20150826, end: 20151205
  19. ZOPICLONE [Concomitant]
     Active Substance: ZOPICLONE
     Dosage: 7.5 MG, QHS
     Route: 048
     Dates: start: 20150826, end: 20151205
  20. BLINATUMOMAB [Suspect]
     Active Substance: BLINATUMOMAB
     Indication: PRODUCT USED FOR UNKNOWN INDICATION
     Dosage: 9 MUG, QD
     Route: 042
     Dates: start: 20151110, end: 20151126
  21. HEPARIN [Concomitant]
     Active Substance: HEPARIN SODIUM
     Dosage: 100 UNIT, AS DIRECTED
     Route: 042
     Dates: start: 20150909, end: 20151205
  22. LACTULOSE. [Concomitant]
     Active Substance: LACTULOSE
     Dosage: 15-30 ML, BID (PRN)
     Route: 048
     Dates: start: 20150908, end: 20151205
  23. METOCLOPRAMIDE. [Concomitant]
     Active Substance: METOCLOPRAMIDE
     Dosage: 10-20 MG, Q4H (PRN)
     Route: 042
     Dates: start: 20151115, end: 20151205
  24. MEPERIDINE [Concomitant]
     Active Substance: MEPERIDINE
     Dosage: 25-50 MG, QH (PRN)
     Route: 042
     Dates: start: 20151110, end: 20151205
  25. ACETAMINOPHEN. [Concomitant]
     Active Substance: ACETAMINOPHEN
     Dosage: 650 MG, Q4H (PRN)
     Route: 048
     Dates: start: 20150826, end: 20151205
  26. DIPHENHYDRAMINE. [Concomitant]
     Active Substance: DIPHENHYDRAMINE
     Dosage: 50 MG, Q4H (PRN)
     Route: 048
     Dates: start: 20150908, end: 20151205
  27. DECADRON [Concomitant]
     Active Substance: DEXAMETHASONE
     Dosage: 10 MG, QD
     Route: 042
     Dates: start: 20151110, end: 20151110
  28. SEPTRA [Concomitant]
     Active Substance: SULFAMETHOXAZOLE\TRIMETHOPRIM
     Dosage: 2 DF, MONDAY-THURSDAY (BID)
     Route: 048
     Dates: start: 20150827, end: 20151205

REACTIONS (1)
  - Pancreatitis [Recovered/Resolved]

NARRATIVE: CASE EVENT DATE: 20151113
